FAERS Safety Report 14214739 (Version 3)
Quarter: 2018Q3

REPORT INFORMATION
  Report Type: Spontaneous
  Country: US (occurrence: US)
  Receive Date: 20171122
  Receipt Date: 20180710
  Transmission Date: 20181010
  Serious: No
  Sender: FDA-Public Use
  Company Number: US-PFIZER INC-2017502323

PATIENT
  Age: 80 Year
  Sex: Female

DRUGS (2)
  1. PREDNISONE. [Concomitant]
     Active Substance: PREDNISONE
     Dosage: 5 MG, 1X/DAY (TAKE 1 TAB BY MOUTH ONCE DAILY)
     Route: 048
  2. XELJANZ XR [Suspect]
     Active Substance: TOFACITINIB CITRATE
     Indication: RHEUMATOID ARTHRITIS
     Dosage: 11 MG, DAILY (BY MOUTH EV. DAY AS DIRECTED BY MY PHYSICIAN)
     Route: 048
     Dates: start: 20171030

REACTIONS (2)
  - Condition aggravated [Not Recovered/Not Resolved]
  - Sinus disorder [Not Recovered/Not Resolved]
